FAERS Safety Report 9663501 (Version 1)
Quarter: 2013Q4

REPORT INFORMATION
  Report Type: Spontaneous
  Country: US (occurrence: US)
  Receive Date: 20131101
  Receipt Date: 20131101
  Transmission Date: 20140711
  Serious: No
  Sender: FDA-Public Use
  Company Number: US-ENDO PHARMACEUTICALS INC.-VENL20130001

PATIENT
  Age: 50 Year
  Sex: Female
  Weight: 74.91 kg

DRUGS (1)
  1. VENLAFAXINE HYDROCHLORIDE TABLETS 75MG [Suspect]
     Indication: DEPRESSION
     Route: 048
     Dates: start: 20130205

REACTIONS (1)
  - Drug effect decreased [Not Recovered/Not Resolved]
